FAERS Safety Report 9955668 (Version 2)
Quarter: 2014Q1

REPORT INFORMATION
  Report Type: Report from Study
  Country: US (occurrence: US)
  Receive Date: 20140304
  Receipt Date: 20140304
  Transmission Date: 20141002
  Serious: Yes (Hospitalization)
  Sender: FDA-Public Use
  Company Number: US-SANOFI-AVENTIS-2013SA040559

PATIENT
  Age: 45 Year
  Sex: Male

DRUGS (1)
  1. AUBAGIO [Suspect]
     Indication: MULTIPLE SCLEROSIS
     Route: 048
     Dates: start: 20130321

REACTIONS (6)
  - Surgery [Unknown]
  - Muscle rigidity [Unknown]
  - Memory impairment [Unknown]
  - Extra dose administered [Unknown]
  - Stomatitis [Not Recovered/Not Resolved]
  - Headache [Recovering/Resolving]
